FAERS Safety Report 11118727 (Version 1)
Quarter: 2015Q2

REPORT INFORMATION
  Report Type: Spontaneous
  Country: US (occurrence: None)
  Receive Date: 20150515
  Receipt Date: 20150515
  Transmission Date: 20150821
  Serious: Yes (Hospitalization)
  Sender: FDA-Public Use
  Company Number: None

PATIENT
  Age: 52 Year
  Sex: Female
  Weight: 55.9 kg

DRUGS (1)
  1. INTRON A [Suspect]
     Active Substance: INTERFERON ALFA-2B
     Dates: end: 20140916

REACTIONS (4)
  - Fatigue [None]
  - Ocular toxicity [None]
  - Conjunctivitis [None]
  - Dry eye [None]

NARRATIVE: CASE EVENT DATE: 20141002
